FAERS Safety Report 5106975-X (Version None)
Quarter: 2006Q3

REPORT INFORMATION
  Report Type: 
  Country: None (occurrence: None)
  Receive Date: 20060913
  Receipt Date: 20060829
  Transmission Date: 20061208
  Serious: Yes (Hospitalization)
  Sender: FDA-Public Use
  Company Number: PHBS2006US13097

PATIENT
  Age: 35 Year
  Sex: Male

DRUGS (9)
  1. NORTRIPTYLINE HCL [Suspect]
     Indication: HEADACHE
  2. TOPIRAMATE [Suspect]
     Indication: HEADACHE
  3. MIRTAZAPINE [Suspect]
     Indication: HEADACHE
  4. AMITRIPTYLINE HCL TAB [Suspect]
     Indication: HEADACHE
  5. OXYCODONE HCL [Suspect]
     Indication: HEADACHE
  6. CODEINE PHOSPHATE (NGX) (CODEINE PHOSPHATE) [Suspect]
  7. NAPROXEN [Suspect]
     Indication: HEADACHE
  8. QUETIAPINE FUMARATE [Suspect]
     Indication: HEADACHE
  9. ZOLMITRIPTAN (ZOLMITRIPTAN) [Suspect]
     Indication: HEADACHE

REACTIONS (9)
  - BODY TEMPERATURE DECREASED [None]
  - CEREBELLAR SYNDROME [None]
  - COORDINATION ABNORMAL [None]
  - DRUG INEFFECTIVE [None]
  - HYPOACUSIS [None]
  - HYPOAESTHESIA [None]
  - INTENTIONAL DRUG MISUSE [None]
  - PAIN [None]
  - PARAESTHESIA [None]
